FAERS Safety Report 17371796 (Version 4)
Quarter: 2020Q2

REPORT INFORMATION
  Report Type: Spontaneous
  Country: DE (occurrence: DE)
  Receive Date: 20200205
  Receipt Date: 20200427
  Transmission Date: 20200713
  Serious: Yes (Other)
  Sender: FDA-Public Use
  Company Number: DE-ROCHE-2543421

PATIENT
  Age: 51 Year
  Sex: Female

DRUGS (7)
  1. OCREVUS [Suspect]
     Active Substance: OCRELIZUMAB
     Route: 042
     Dates: start: 201709
  2. OCREVUS [Suspect]
     Active Substance: OCRELIZUMAB
     Indication: PRIMARY PROGRESSIVE MULTIPLE SCLEROSIS
     Route: 042
     Dates: start: 201708, end: 20180919
  3. VIT D [Concomitant]
     Active Substance: VITAMIN D NOS
     Indication: PRIMARY PROGRESSIVE MULTIPLE SCLEROSIS
     Route: 048
  4. FAMPYRA [Concomitant]
     Active Substance: DALFAMPRIDINE
     Indication: GAIT DISTURBANCE
     Dosage: 1-0-1
     Route: 048
  5. OCREVUS [Suspect]
     Active Substance: OCRELIZUMAB
     Route: 042
     Dates: start: 201803
  6. OCREVUS [Suspect]
     Active Substance: OCRELIZUMAB
     Route: 042
     Dates: start: 201809
  7. FAMPYRA [Concomitant]
     Active Substance: DALFAMPRIDINE
     Indication: PRIMARY PROGRESSIVE MULTIPLE SCLEROSIS

REACTIONS (2)
  - Lymphopenia [Unknown]
  - Cervix carcinoma [Recovered/Resolved]

NARRATIVE: CASE EVENT DATE: 20170901
